FAERS Safety Report 7482516-7 (Version None)
Quarter: 2011Q2

REPORT INFORMATION
  Report Type: 
  Country: None (occurrence: None)
  Receive Date: 20110516
  Receipt Date: 20110505
  Transmission Date: 20111010
  Serious: Yes (Other)
  Sender: FDA-Public Use
  Company Number: US-BAYER-2011-039250

PATIENT
  Age: 22 Year
  Sex: Female

DRUGS (2)
  1. POTASSIUM [POTASSIUM] [Concomitant]
     Indication: BLOOD POTASSIUM DECREASED
     Dosage: UNK UNK, PRN
     Route: 048
  2. MIRENA [Suspect]
     Indication: CONTRACEPTION
     Dosage: 20 ?G, CONT
     Route: 015
     Dates: start: 20090301

REACTIONS (3)
  - ARTHRALGIA [None]
  - NEURALGIA [None]
  - CONVULSION [None]
